FAERS Safety Report 16624039 (Version 1)
Quarter: 2019Q3

REPORT INFORMATION
  Report Type: Spontaneous
  Country: TR (occurrence: TR)
  Receive Date: 20190724
  Receipt Date: 20190724
  Transmission Date: 20191004
  Serious: Yes (Other)
  Sender: FDA-Public Use
  Company Number: TR-LUPIN PHARMACEUTICALS INC.-2019-04511

PATIENT
  Age: 55 Year
  Sex: Male

DRUGS (10)
  1. PANTOPRAZOLE [Interacting]
     Active Substance: PANTOPRAZOLE
     Indication: PRODUCT USED FOR UNKNOWN INDICATION
     Dosage: UNK
     Route: 065
  2. NORADRENALINE [NOREPINEPHRINE] [Concomitant]
     Active Substance: NOREPINEPHRINE
     Indication: MYXOEDEMA COMA
  3. LEVOTHYROXINE SODIUM TABLETS [Interacting]
     Active Substance: LEVOTHYROXINE SODIUM
     Dosage: 150 MILLIGRAM
  4. LEVOTHYROXINE SODIUM TABLETS [Interacting]
     Active Substance: LEVOTHYROXINE SODIUM
     Dosage: 100 MILLIGRAM (DOSE DECREASED)
  5. LEVOTHYROXINE SODIUM TABLETS [Suspect]
     Active Substance: LEVOTHYROXINE SODIUM
     Indication: HYPOTHYROIDISM
     Dosage: 300 MILLIGRAM
  6. PREDNISONE. [Concomitant]
     Active Substance: PREDNISONE
     Indication: RESPIRATORY FAILURE
     Dosage: 80 MILLIGRAM
     Route: 065
  7. NORADRENALINE [NOREPINEPHRINE] [Concomitant]
     Active Substance: NOREPINEPHRINE
     Indication: CARDIOGENIC SHOCK
  8. PREDNISONE. [Concomitant]
     Active Substance: PREDNISONE
     Indication: MYXOEDEMA COMA
  9. PREDNISONE. [Concomitant]
     Active Substance: PREDNISONE
     Indication: CARDIOGENIC SHOCK
  10. NORADRENALINE [NOREPINEPHRINE] [Concomitant]
     Active Substance: NOREPINEPHRINE
     Indication: RESPIRATORY FAILURE
     Dosage: UNK
     Route: 065

REACTIONS (1)
  - Drug interaction [Unknown]
